FAERS Safety Report 8083094-4 (Version None)
Quarter: 2012Q1

REPORT INFORMATION
  Report Type: 
  Country: None (occurrence: None)
  Receive Date: 20120127
  Receipt Date: 20110228
  Transmission Date: 20120608
  Serious: No
  Sender: FDA-Public Use
  Company Number: US-ABBOTT-11P-163-0708819-00

PATIENT
  Sex: Female
  Weight: 66.738 kg

DRUGS (6)
  1. FOLIC ACID [Concomitant]
     Indication: PRODUCT USED FOR UNKNOWN INDICATION
  2. ALPHAGAN [Concomitant]
     Indication: GLAUCOMA
     Route: 047
  3. TIMOLOL MALEATE [Concomitant]
     Indication: GLAUCOMA
     Route: 047
  4. METHOTREXATE [Concomitant]
     Indication: PRODUCT USED FOR UNKNOWN INDICATION
  5. HUMIRA [Suspect]
     Indication: RHEUMATOID ARTHRITIS
     Route: 058
     Dates: start: 20100301
  6. LOVASTATIN [Concomitant]
     Indication: BLOOD CHOLESTEROL INCREASED

REACTIONS (8)
  - PAIN [None]
  - MENTAL IMPAIRMENT [None]
  - THINKING ABNORMAL [None]
  - AMNESIA [None]
  - ARTHRALGIA [None]
  - OCULAR HYPERAEMIA [None]
  - VISUAL ACUITY REDUCED [None]
  - INJECTION SITE PAIN [None]
